FAERS Safety Report 7660843-8 (Version None)
Quarter: 2011Q3

REPORT INFORMATION
  Report Type: 
  Country: None (occurrence: None)
  Receive Date: 20110805
  Receipt Date: 20101110
  Transmission Date: 20111222
  Serious: No
  Sender: FDA-Public Use
  Company Number: US-ABBOTT-10P-163-0684544-00

PATIENT
  Sex: Male
  Weight: 98.518 kg

DRUGS (7)
  1. NIASPAN [Suspect]
     Indication: DYSLIPIDAEMIA
     Route: 048
  2. ASPIRIN [Concomitant]
     Indication: PRODUCT USED FOR UNKNOWN INDICATION
  3. DIOVAN [Concomitant]
     Indication: PRODUCT USED FOR UNKNOWN INDICATION
  4. NIASPAN [Suspect]
     Indication: DYSLIPIDAEMIA
     Route: 048
     Dates: start: 20020101
  5. SIMVASTATIN [Concomitant]
     Indication: PRODUCT USED FOR UNKNOWN INDICATION
  6. TEMAZEPAM [Concomitant]
     Indication: INSOMNIA
  7. CARVEDILOL [Concomitant]
     Indication: PRODUCT USED FOR UNKNOWN INDICATION

REACTIONS (1)
  - FLUSHING [None]
